FAERS Safety Report 8857820 (Version 2)
Quarter: 2013Q1

REPORT INFORMATION
  Report Type: Spontaneous
  Country: FR (occurrence: FR)
  Receive Date: 20121024
  Receipt Date: 20130124
  Transmission Date: 20140127
  Serious: Yes (Other)
  Sender: FDA-Public Use
  Company Number: FR-BMSGILMSD-2012-0063340

PATIENT
  Age: 47 Year
  Sex: Female

DRUGS (8)
  1. ATRIPLA [Suspect]
     Indication: HIV INFECTION
     Dosage: 1 DF, QD
     Route: 048
     Dates: start: 20120321
  2. VICTRELIS [Suspect]
     Indication: CHRONIC HEPATITIS C
     Dosage: 12 DF, QD
     Route: 048
     Dates: start: 20120321, end: 20120612
  3. PEGASYS [Suspect]
     Indication: CHRONIC HEPATITIS C
     Dosage: 1 DF, Q1WK
     Route: 058
     Dates: start: 20120321, end: 20120612
  4. COPEGUS [Suspect]
     Indication: CHRONIC HEPATITIS C
     Dosage: 3 DF, BID
     Route: 048
     Dates: start: 20120321, end: 20120612
  5. ZELITREX [Concomitant]
     Indication: PRODUCT USED FOR UNKNOWN INDICATION
     Dosage: 1 DF, QD
     Dates: start: 2009
  6. LEVOTHYROX [Concomitant]
     Indication: PRODUCT USED FOR UNKNOWN INDICATION
     Dosage: 1 DF, QD
  7. TRIATEC                            /00116401/ [Concomitant]
     Indication: PRODUCT USED FOR UNKNOWN INDICATION
     Dosage: 1 DF, QD
  8. UVEDOSE [Concomitant]
     Indication: PRODUCT USED FOR UNKNOWN INDICATION
     Dosage: UNK
     Dates: start: 201204

REACTIONS (8)
  - Anaemia [Recovered/Resolved]
  - Hypoacusis [Not Recovered/Not Resolved]
  - Neutropenia [Recovered/Resolved]
  - Insomnia [Recovering/Resolving]
  - Vertigo [Recovering/Resolving]
  - Tinnitus [Not Recovered/Not Resolved]
  - Melanoderma [Not Recovered/Not Resolved]
  - Pruritus [Recovered/Resolved]
